FAERS Safety Report 5394563-X (Version None)
Quarter: 2007Q3

REPORT INFORMATION
  Report Type: 
  Country: None (occurrence: None)
  Receive Date: 20070723
  Receipt Date: 20070711
  Transmission Date: 20080115
  Serious: Yes (Hospitalization, Other)
  Sender: FDA-Public Use
  Company Number: US-SHR-US-2007-019354

PATIENT
  Age: 43 Year
  Sex: Male
  Weight: 90.703 kg

DRUGS (2)
  1. BETASERON [Suspect]
     Dosage: 6 MIU, EVERY 2D
     Route: 058
     Dates: start: 20070420
  2. BETASERON [Suspect]
     Dosage: 8 MIU, EVERY 2D
     Route: 058
     Dates: end: 20070101

REACTIONS (7)
  - ABASIA [None]
  - ASTHENIA [None]
  - CRYING [None]
  - DRUG INEFFECTIVE [None]
  - FATIGUE [None]
  - SPEECH DISORDER [None]
  - SUICIDAL IDEATION [None]
